FAERS Safety Report 5258559-0 (Version None)
Quarter: 2007Q1

REPORT INFORMATION
  Report Type: 
  Country: None (occurrence: None)
  Receive Date: 20070305
  Receipt Date: 20070215
  Transmission Date: 20070707
  Serious: Yes (Other)
  Sender: FDA-Public Use
  Company Number: DSA_29027_2006

PATIENT
  Age: 77 Year
  Sex: Male

DRUGS (7)
  1. ENALAPRIL MALEATE [Suspect]
     Indication: BLOOD PRESSURE INCREASED
     Dosage: 5 MG QD PO
     Route: 048
     Dates: start: 20010201
  2. ACETAMINOPHEN W/ CODEINE [Concomitant]
  3. BECLOMET [Concomitant]
  4. VALIQUID [Concomitant]
  5. NEXIUM [Concomitant]
  6. PREDNISONE [Concomitant]
  7. SIMVASTATIN [Concomitant]

REACTIONS (1)
  - PULMONARY FIBROSIS [None]
